FAERS Safety Report 6019568-7 (Version None)
Quarter: 2008Q4

REPORT INFORMATION
  Report Type: 
  Country: None (occurrence: None)
  Receive Date: 20081224
  Receipt Date: 20081216
  Transmission Date: 20090506
  Serious: Yes (Other)
  Sender: FDA-Public Use
  Company Number: PHHY2008GB32391

PATIENT

DRUGS (2)
  1. EXELON [Suspect]
     Route: 048
  2. EXELON [Suspect]
     Dosage: 30MG DOSE
     Route: 048

REACTIONS (2)
  - CARDIAC MONITORING [None]
  - MEDICATION ERROR [None]
